FAERS Safety Report 21096523 (Version 2)
Quarter: 2022Q3

REPORT INFORMATION
  Report Type: Spontaneous
  Country: JP (occurrence: JP)
  Receive Date: 20220718
  Receipt Date: 20220808
  Transmission Date: 20221027
  Serious: Yes (Death, Other)
  Sender: FDA-Public Use
  Company Number: JP-MSD-M2022-28391

PATIENT
  Age: 81 Year
  Sex: Female

DRUGS (1)
  1. ZERBAXA [Suspect]
     Active Substance: CEFTOLOZANE SULFATE\TAZOBACTAM SODIUM
     Dosage: 1.5 GRAM, TID
     Route: 041
     Dates: start: 20220617, end: 20220623

REACTIONS (1)
  - Death [Fatal]

NARRATIVE: CASE EVENT DATE: 20220623
